FAERS Safety Report 25050406 (Version 1)
Quarter: 2025Q1

REPORT INFORMATION
  Report Type: Spontaneous
  Country: CA (occurrence: CA)
  Receive Date: 20250307
  Receipt Date: 20250307
  Transmission Date: 20250408
  Serious: Yes (Other)
  Sender: NOVARTIS
  Company Number: CA-002147023-NVSC2025CA037753

PATIENT
  Age: 56 Year
  Sex: Male

DRUGS (1)
  1. TERBINAFINE [Suspect]
     Active Substance: TERBINAFINE
     Indication: Fungal skin infection
     Dosage: 250 MG, QD (1 EVERY 1 DAYS)
     Route: 048

REACTIONS (1)
  - Lupus-like syndrome [Recovered/Resolved with Sequelae]
